FAERS Safety Report 5570352-8 (Version None)
Quarter: 2007Q4

REPORT INFORMATION
  Report Type: 
  Country: None (occurrence: None)
  Receive Date: 20071221
  Receipt Date: 20071213
  Transmission Date: 20080405
  Serious: Yes (Other)
  Sender: FDA-Public Use
  Company Number: PHHO2007AT20437

PATIENT
  Age: 21 Year
  Sex: Male
  Weight: 63 kg

DRUGS (2)
  1. MYCOPHENOLIC ACID [Suspect]
     Indication: TRANSPLANT
     Dosage: UNK, UNK
  2. CERTICAN [Suspect]
     Indication: TRANSPLANT
     Dosage: 3 MG, BID
     Route: 048

REACTIONS (1)
  - AGGRESSION [None]
